FAERS Safety Report 24146921 (Version 2)
Quarter: 2024Q4

REPORT INFORMATION
  Report Type: Spontaneous
  Country: PT (occurrence: PT)
  Receive Date: 20240729
  Receipt Date: 20241204
  Transmission Date: 20250115
  Serious: Yes (Hospitalization, Other)
  Sender: PFIZER
  Company Number: PT-009507513-2407PRT010556

PATIENT
  Age: 57 Year
  Sex: Male

DRUGS (7)
  1. AXITINIB [Suspect]
     Active Substance: AXITINIB
     Indication: Clear cell renal cell carcinoma
     Dosage: 4 MILLIGRAM, BID
     Dates: start: 202206, end: 202208
  2. AXITINIB [Suspect]
     Active Substance: AXITINIB
     Dosage: 3 MILLIGRAM, BID
     Dates: start: 202208, end: 2022
  3. AXITINIB [Suspect]
     Active Substance: AXITINIB
     Dosage: 2 MILLIGRAM, BID
     Dates: start: 2022, end: 2022
  4. PEMBROLIZUMAB [Suspect]
     Active Substance: PEMBROLIZUMAB
     Indication: Metastatic renal cell carcinoma
     Dosage: UNK
     Dates: start: 202206, end: 202208
  5. PEMBROLIZUMAB [Suspect]
     Active Substance: PEMBROLIZUMAB
     Dosage: UNK
     Dates: start: 202211
  6. CABOZANTINIB [Suspect]
     Active Substance: CABOZANTINIB
     Indication: Clear cell renal cell carcinoma
     Dosage: 40 MILLIGRAM DAILY
     Dates: start: 202402, end: 2024
  7. CABOZANTINIB [Suspect]
     Active Substance: CABOZANTINIB
     Dosage: 20 MILLIGRAM DAILY
     Dates: start: 2024

REACTIONS (11)
  - Rheumatoid arthritis [Unknown]
  - Cholestasis [Unknown]
  - Hyponatraemia [Unknown]
  - Hyperthyroidism [Unknown]
  - Cell death [Unknown]
  - Klebsiella urinary tract infection [Recovered/Resolved]
  - Mucosal inflammation [Unknown]
  - Gait disturbance [Unknown]
  - Transaminases increased [Unknown]
  - Dehydration [Recovering/Resolving]
  - Neoplasm progression [Unknown]

NARRATIVE: CASE EVENT DATE: 20220801
